FAERS Safety Report 6589188-4 (Version None)
Quarter: 2010Q1

REPORT INFORMATION
  Report Type: 
  Country: None (occurrence: None)
  Receive Date: 20100218
  Receipt Date: 20100210
  Transmission Date: 20100710
  Serious: Yes (Hospitalization)
  Sender: FDA-Public Use
  Company Number: JP-ABBOTT-09P-087-0603354-00

PATIENT
  Sex: Male

DRUGS (12)
  1. LEUPLIN SR FOR INJECTION 11.25 MG [Suspect]
     Indication: PROSTATE CANCER
     Route: 058
     Dates: start: 20090630, end: 20091003
  2. CASODEX [Suspect]
     Indication: PROSTATE CANCER
     Route: 048
     Dates: end: 20091003
  3. CASODEX [Suspect]
     Route: 048
     Dates: start: 20091124
  4. ACTOS [Concomitant]
     Indication: TYPE 2 DIABETES MELLITUS
     Route: 048
  5. LACALMIN [Concomitant]
     Indication: OEDEMA
     Route: 048
  6. LASOPRAN [Concomitant]
     Indication: REFLUX OESOPHAGITIS
     Route: 048
  7. PLAVIX [Concomitant]
     Indication: CEREBRAL INFARCTION
     Route: 048
  8. URIEF (SILODOSIN) [Concomitant]
     Indication: BENIGN PROSTATIC HYPERPLASIA
     Route: 048
  9. ASPIRIN [Concomitant]
     Indication: CEREBRAL INFARCTION
     Route: 048
  10. CRESTOR [Concomitant]
     Indication: ILL-DEFINED DISORDER
     Route: 048
  11. KENTAN [Concomitant]
     Indication: OSTEOARTHRITIS
     Route: 048
  12. GLUFAST [Concomitant]
     Indication: TYPE 2 DIABETES MELLITUS
     Route: 048

REACTIONS (1)
  - INTERSTITIAL LUNG DISEASE [None]
